FAERS Safety Report 7647380-1 (Version None)
Quarter: 2011Q3

REPORT INFORMATION
  Report Type: 
  Country: None (occurrence: None)
  Receive Date: 20110729
  Receipt Date: 20110729
  Transmission Date: 20111222
  Serious: Yes (Hospitalization)
  Sender: FDA-Public Use
  Company Number: None

PATIENT
  Sex: Female
  Weight: 85.1 kg

DRUGS (2)
  1. CARBOPLATIN [Suspect]
     Dosage: 0 MG
     Dates: end: 20110720
  2. PACLITAXEL [Suspect]
     Dosage: 145 MG
     Dates: end: 20110720

REACTIONS (5)
  - UNRESPONSIVE TO STIMULI [None]
  - APNOEA [None]
  - PULSE ABSENT [None]
  - HYPERSENSITIVITY [None]
  - INFUSION RELATED REACTION [None]
